FAERS Safety Report 10358018 (Version 1)
Quarter: 2014Q3

REPORT INFORMATION
  Report Type: Spontaneous
  Country: US (occurrence: US)
  Receive Date: 20140801
  Receipt Date: 20140801
  Transmission Date: 20150326
  Serious: Yes (Other)
  Sender: FDA-Public Use
  Company Number: US-BRISTOL-MYERS SQUIBB COMPANY-21226311

PATIENT
  Age: 79 Year
  Sex: Female
  Weight: 76.19 kg

DRUGS (2)
  1. METFORMIN [Concomitant]
     Active Substance: METFORMIN HYDROCHLORIDE
  2. BYETTA [Suspect]
     Active Substance: EXENATIDE
     Indication: DIABETES MELLITUS
     Dosage: DURATION: 2-3 YEARS AGO

REACTIONS (1)
  - Cataract [Unknown]

NARRATIVE: CASE EVENT DATE: 201406
